FAERS Safety Report 14062356 (Version 3)
Quarter: 2018Q2

REPORT INFORMATION
  Report Type: Spontaneous
  Country: US (occurrence: US)
  Receive Date: 20171009
  Receipt Date: 20180420
  Transmission Date: 20180711
  Serious: No
  Sender: FDA-Public Use
  Company Number: US-PFIZER INC-2017431129

PATIENT
  Age: 69 Year
  Sex: Female
  Weight: 136 kg

DRUGS (2)
  1. IBRANCE [Suspect]
     Active Substance: PALBOCICLIB
     Indication: BREAST CANCER METASTATIC
     Dosage: 125 MG, CYCLIC (DAYS 1-21 Q28 DAYS)
     Route: 048
     Dates: start: 20170913
  2. IBRANCE [Suspect]
     Active Substance: PALBOCICLIB
     Dosage: 125 MG, CYCLIC [DAYS 1-21 Q28 DAYS]
     Route: 048
     Dates: start: 20170913

REACTIONS (7)
  - Full blood count decreased [Unknown]
  - Lung disorder [Unknown]
  - Anaemia [Unknown]
  - Urinary tract infection [Unknown]
  - Dysgeusia [Unknown]
  - White blood cell count decreased [Unknown]
  - Rash pruritic [Unknown]
